FAERS Safety Report 9180881 (Version 2)
Quarter: 2013Q2

REPORT INFORMATION
  Report Type: Spontaneous
  Country: GB (occurrence: GB)
  Receive Date: 20130322
  Receipt Date: 20130516
  Transmission Date: 20140414
  Serious: Yes (Death, Hospitalization, Disabling)
  Sender: FDA-Public Use
  Company Number: GB-MPIJNJ-2013-01029

PATIENT
  Sex: 0

DRUGS (2)
  1. VELCADE [Suspect]
     Indication: PLASMA CELL MYELOMA
     Dosage: 2.3 MG, UNK
     Route: 042
     Dates: start: 20121002, end: 20121005
  2. DEXAMETHASONE [Suspect]
     Indication: PLASMA CELL MYELOMA
     Dosage: 20 MG, UNK
     Route: 048
     Dates: start: 20121002

REACTIONS (8)
  - Multi-organ failure [Fatal]
  - Neutropenic sepsis [Fatal]
  - Febrile neutropenia [Recovered/Resolved]
  - Productive cough [Recovered/Resolved]
  - Thrombocytopenia [Not Recovered/Not Resolved]
  - Lower respiratory tract infection [Recovered/Resolved]
  - Disease progression [Unknown]
  - Drug ineffective [Unknown]
